FAERS Safety Report 25087004 (Version 1)
Quarter: 2025Q1

REPORT INFORMATION
  Report Type: Spontaneous
  Country: US (occurrence: US)
  Receive Date: 20250318
  Receipt Date: 20250318
  Transmission Date: 20250408
  Serious: No
  Sender: ROCHE
  Company Number: US-ROCHE-10000234746

PATIENT
  Sex: Male
  Weight: 87.5 kg

DRUGS (1)
  1. HEMLIBRA [Suspect]
     Active Substance: EMICIZUMAB-KXWH
     Indication: Factor VIII deficiency
     Dosage: FORM STRENGTH: 300 MG/ 2 ML
     Route: 058
     Dates: start: 201906

REACTIONS (2)
  - Off label use [Unknown]
  - No adverse event [Unknown]
